FAERS Safety Report 24829194 (Version 3)
Quarter: 2025Q3

REPORT INFORMATION
  Report Type: Spontaneous
  Country: MY (occurrence: MY)
  Receive Date: 20250110
  Receipt Date: 20250809
  Transmission Date: 20251021
  Serious: Yes (Death, Hospitalization, Other)
  Sender: ALEXION PHARMACEUTICALS
  Company Number: MY-AstraZeneca-CH-00780988A

PATIENT
  Age: 67 Year
  Sex: Female
  Weight: 66.6 kg

DRUGS (12)
  1. IMFINZI [Suspect]
     Active Substance: DURVALUMAB
     Indication: Gallbladder adenocarcinoma
     Dosage: 1500 MILLIGRAM, Q3W
     Dates: start: 20241009, end: 20241128
  2. FELODIPINE [Concomitant]
     Active Substance: FELODIPINE
     Dosage: 10 MILLIGRAM, QD
     Route: 065
  3. BISOPROLOL [Concomitant]
     Active Substance: BISOPROLOL
     Dosage: 3.75 MILLIGRAM, QD
     Route: 065
  4. INDAPAMIDE\PERINDOPRIL [Concomitant]
     Active Substance: INDAPAMIDE\PERINDOPRIL
     Dosage: 2 DOSAGE FORM, QD
     Route: 065
  5. ATORVASTATIN [Concomitant]
     Active Substance: ATORVASTATIN
     Route: 065
  6. METFORMIN [Concomitant]
     Active Substance: METFORMIN HYDROCHLORIDE
     Dosage: 500 MILLIGRAM, QD
     Route: 065
  7. RYZODEG 70/30 [Concomitant]
     Active Substance: INSULIN ASPART\INSULIN DEGLUDEC
     Route: 065
  8. Cardiprin [Concomitant]
     Route: 065
  9. CALCIUM CARBONATE [Concomitant]
     Active Substance: CALCIUM CARBONATE
  10. NEUROBION [Concomitant]
     Active Substance: CYANOCOBALAMIN\PYRIDOXINE\THIAMINE
     Route: 065
  11. FENTANYL [Concomitant]
     Active Substance: FENTANYL
     Route: 065
  12. XARELTO [Concomitant]
     Active Substance: RIVAROXABAN
     Route: 065

REACTIONS (1)
  - Neutropenic sepsis [Fatal]

NARRATIVE: CASE EVENT DATE: 20241216
